FAERS Safety Report 8409895-8 (Version None)
Quarter: 2012Q2

REPORT INFORMATION
  Report Type: 
  Country: None (occurrence: None)
  Receive Date: 20120605
  Receipt Date: 20120524
  Transmission Date: 20120825
  Serious: Yes (Disabling)
  Sender: FDA-Public Use
  Company Number: FR-JNJFOC-20120520421

PATIENT
  Sex: Female

DRUGS (3)
  1. REMICADE [Suspect]
     Route: 042
     Dates: end: 20081205
  2. REMICADE [Suspect]
     Route: 042
     Dates: start: 20080110
  3. REMICADE [Suspect]
     Indication: ANKYLOSING SPONDYLITIS
     Route: 042
     Dates: end: 20090116

REACTIONS (3)
  - MYELITIS [None]
  - LOSS OF CONTROL OF LEGS [None]
  - HYPOKINESIA [None]
